FAERS Safety Report 23110584 (Version 1)
Quarter: 2023Q4

REPORT INFORMATION
  Report Type: Spontaneous
  Country: US (occurrence: US)
  Receive Date: 20231026
  Receipt Date: 20231026
  Transmission Date: 20240110
  Serious: Yes (Life-Threatening, Hospitalization, Other)
  Sender: FDA-Public Use
  Company Number: US-MLMSERVICE-20231005-4592887-1

PATIENT
  Age: 39 Year
  Sex: Male

DRUGS (1)
  1. METHYLPREDNISOLONE [Suspect]
     Active Substance: METHYLPREDNISOLONE
     Indication: Upper respiratory tract infection
     Dosage: 80 MILLIGRAM
     Route: 065

REACTIONS (2)
  - Hypokalaemia [Recovered/Resolved]
  - Thyrotoxic periodic paralysis [Recovering/Resolving]
